FAERS Safety Report 8852905 (Version 2)
Quarter: 2012Q4

REPORT INFORMATION
  Report Type: 
  Country: DE (occurrence: DE)
  Receive Date: 20121022
  Receipt Date: 20121206
  Transmission Date: 20130627
  Serious: Yes (Hospitalization, Other)
  Sender: FDA-Public Use
  Company Number: DE-VERTEX PHARMACEUTICAL INC.-2012-023347

PATIENT
  Age: 48 Year
  Sex: Male
  Weight: 78 kg

DRUGS (3)
  1. INCIVO [Suspect]
     Indication: HEPATITIS C
     Dosage: 2 DF, tid
     Route: 065
     Dates: start: 20111020, end: 20120113
  2. PEGASYS [Suspect]
     Indication: CHRONIC HEPATITIS C
     Dosage: 1 DF, qw
     Route: 058
     Dates: start: 20111020, end: 20120601
  3. RIBAVIRIN [Suspect]
     Indication: CHRONIC HEPATITIS C
     Dosage: 1 DF, tid
     Route: 048
     Dates: start: 20111020, end: 20120601

REACTIONS (14)
  - Varices oesophageal [Unknown]
  - Ascites [Unknown]
  - Colon adenoma [Unknown]
  - Haemorrhoids [Unknown]
  - Haemoglobin decreased [Unknown]
  - Weight decreased [Unknown]
  - Bronchitis [Recovered/Resolved]
  - Gastritis [Unknown]
  - Hypertension [Unknown]
  - Decreased appetite [Unknown]
  - Pruritus [Unknown]
  - Fatigue [Unknown]
  - Rash erythematous [Unknown]
  - Oedema peripheral [Unknown]
